FAERS Safety Report 12352387 (Version 1)
Quarter: 2016Q2

REPORT INFORMATION
  Report Type: Spontaneous
  Country: US (occurrence: US)
  Receive Date: 20160510
  Receipt Date: 20160510
  Transmission Date: 20160815
  Serious: No
  Sender: FDA-Public Use
  Company Number: US-ASTRAZENECA-2016SE46366

PATIENT
  Sex: Male
  Weight: 120.2 kg

DRUGS (4)
  1. MOVANTIK [Suspect]
     Active Substance: NALOXEGOL OXALATE
     Indication: CONSTIPATION
     Route: 048
     Dates: start: 201604
  2. LIPITOR [Concomitant]
     Active Substance: ATORVASTATIN CALCIUM
  3. OXYTOCIN. [Concomitant]
     Active Substance: OXYTOCIN
     Indication: KNEE ARTHROPLASTY
     Dates: start: 20160414
  4. SPIROLACTONE [Concomitant]
     Active Substance: SPIRONOLACTONE

REACTIONS (2)
  - Feeling abnormal [Unknown]
  - Oral pain [Not Recovered/Not Resolved]
